FAERS Safety Report 25979216 (Version 1)
Quarter: 2025Q4

REPORT INFORMATION
  Report Type: Spontaneous
  Country: EU (occurrence: EU)
  Receive Date: 20251030
  Receipt Date: 20251030
  Transmission Date: 20260117
  Serious: Yes (Hospitalization)
  Sender: ROCHE
  Company Number: None

PATIENT
  Age: 50 Year
  Sex: Female
  Weight: 120.0 kg

DRUGS (2)
  1. TOCILIZUMAB [Suspect]
     Active Substance: TOCILIZUMAB
     Indication: COVID-19
     Dosage: ON 05/MAY/2021, MOST RECENT DOSE
     Route: 042
     Dates: start: 20210505, end: 20210505
  2. IOMERON [Suspect]
     Active Substance: IOMEPROL
     Indication: Angioscopy
     Dosage: 350 (350 MG D^IODE/ML)
     Route: 042
     Dates: start: 20210507, end: 20210507

REACTIONS (1)
  - Rash maculo-papular [Recovering/Resolving]

NARRATIVE: CASE EVENT DATE: 20210508
